FAERS Safety Report 7873841-6 (Version None)
Quarter: 2011Q4

REPORT INFORMATION
  Report Type: 
  Country: None (occurrence: None)
  Receive Date: 20111030
  Receipt Date: 20110511
  Transmission Date: 20120403
  Serious: No
  Sender: FDA-Public Use
  Company Number: US-AMGEN-USASP2011024450

PATIENT
  Sex: Female
  Weight: 62.585 kg

DRUGS (7)
  1. ENBREL [Suspect]
     Indication: PRODUCT USED FOR UNKNOWN INDICATION
     Dosage: 50 MG, QWK
     Route: 058
  2. METHOTREXATE [Concomitant]
     Dosage: 2.5 MG, UNK
  3. VITAMIN E                          /00110501/ [Concomitant]
     Dosage: 1000 IU, UNK
  4. FOLIC ACID [Concomitant]
     Dosage: 1 MG, UNK
  5. CALCIUM D                          /00944201/ [Concomitant]
  6. NABUMETONE [Concomitant]
     Dosage: 500 MG, UNK
  7. MULTIVITAMIN                       /00097801/ [Concomitant]

REACTIONS (1)
  - INJECTION SITE ERYTHEMA [None]
